FAERS Safety Report 23814026 (Version 1)
Quarter: 2024Q2

REPORT INFORMATION
  Report Type: Spontaneous
  Country: US (occurrence: US)
  Receive Date: 20240503
  Receipt Date: 20240503
  Transmission Date: 20240716
  Serious: No
  Sender: FDA-Public Use
  Company Number: US-GALDERMA-US2024005872

PATIENT

DRUGS (10)
  1. PROACTIV MD ADAPALENE ACNE TREATMENT [Suspect]
     Active Substance: ADAPALENE
     Indication: Acne
     Dosage: 1 DOSAGE FORM, QD, DROP SIZE
     Route: 061
     Dates: start: 20240312, end: 202403
  2. PROACTIV MD ADAPALENE ACNE TREATMENT [Suspect]
     Active Substance: ADAPALENE
     Indication: Skin hyperpigmentation
     Dosage: 1 DOSAGE FORM, QD, DROP SIZE
     Route: 061
     Dates: start: 202403
  3. Proactiv MD Ultra Gentle Cleanser [Concomitant]
     Indication: Acne
     Dosage: 1 DOSAGE FORM, QWK, ABOUT A SIZE OF A QUARTER
     Route: 061
     Dates: start: 20240312, end: 202403
  4. Proactiv MD Ultra Gentle Cleanser [Concomitant]
     Indication: Skin hyperpigmentation
     Dosage: 1 DOSAGE FORM, QD, ABOUT A SIZE OF A QUARTER
     Route: 061
     Dates: start: 202403
  5. Proactiv MD Ultra Hydrating Moisturizer [Concomitant]
     Indication: Acne
     Dosage: 1 DOSAGE FORM, QWK, ABOUT A SIZE OF A QUARTER
     Route: 061
     Dates: start: 20240312, end: 202403
  6. Proactiv MD Ultra Hydrating Moisturizer [Concomitant]
     Indication: Skin hyperpigmentation
     Dosage: 1 DOSAGE FORM, QD, ABOUT A SIZE OF A QUARTER
     Route: 061
     Dates: start: 202403
  7. COSMETICS [Concomitant]
     Active Substance: COSMETICS
     Indication: Acne
     Dosage: 1 DOSAGE FORM, QWK, ABOUT A SIZE OF A QUARTER
     Route: 061
     Dates: start: 20240312, end: 202403
  8. COSMETICS [Concomitant]
     Active Substance: COSMETICS
     Indication: Skin hyperpigmentation
     Dosage: 1 DOSAGE FORM, QD, ABOUT A SIZE OF A QUARTER
     Route: 061
     Dates: start: 202403
  9. COSMETICS [Concomitant]
     Active Substance: COSMETICS
     Indication: Acne
     Dosage: 1 DOSAGE FORM, QWK, ABOUT A SIZE OF A QUARTER
     Route: 061
     Dates: start: 20240312, end: 202403
  10. COSMETICS [Concomitant]
     Active Substance: COSMETICS
     Indication: Skin hyperpigmentation
     Dosage: 1 DOSAGE FORM, QD, ABOUT A SIZE OF A QUARTER
     Route: 061
     Dates: start: 202403

REACTIONS (5)
  - Skin irritation [Not Recovered/Not Resolved]
  - Skin exfoliation [Not Recovered/Not Resolved]
  - Skin erosion [Not Recovered/Not Resolved]
  - Acne [Not Recovered/Not Resolved]
  - Skin burning sensation [Not Recovered/Not Resolved]

NARRATIVE: CASE EVENT DATE: 20240301
